FAERS Safety Report 13211653 (Version 1)
Quarter: 2017Q1

REPORT INFORMATION
  Report Type: Spontaneous
  Country: SE (occurrence: SE)
  Receive Date: 20170210
  Receipt Date: 20170210
  Transmission Date: 20170428
  Serious: Yes (Other)
  Sender: FDA-Public Use
  Company Number: SE-TEVA-736556ACC

PATIENT
  Age: 25 Year
  Sex: Male

DRUGS (1)
  1. ALFUZOSIN TEVA DEPOT TABLET [Suspect]
     Active Substance: ALFUZOSIN HYDROCHLORIDE
     Indication: MICTURITION DISORDER
     Dosage: 10 MILLIGRAM DAILY;
     Dates: start: 201604

REACTIONS (1)
  - Urinary incontinence [Not Recovered/Not Resolved]

NARRATIVE: CASE EVENT DATE: 2016
